FAERS Safety Report 17807335 (Version 1)
Quarter: 2020Q2

REPORT INFORMATION
  Report Type: Other
  Country: CA (occurrence: CA)
  Receive Date: 20200520
  Receipt Date: 20200520
  Transmission Date: 20200714
  Serious: Yes (Disabling)
  Sender: FDA-Public Use
  Company Number: CA-APOTEX-2020AP010983

PATIENT
  Age: 69 Year
  Sex: Male
  Weight: 45.35 kg

DRUGS (1)
  1. APO-ROSUVASTATIN [Suspect]
     Active Substance: ROSUVASTATIN
     Indication: DYSLIPIDAEMIA
     Dosage: 5 MG, UNK
     Route: 048

REACTIONS (5)
  - Blood creatine phosphokinase increased [Recovered/Resolved]
  - Arthralgia [Recovered/Resolved]
  - Liver function test increased [Recovered/Resolved]
  - Pain [Recovered/Resolved]
  - Product substitution issue [Recovered/Resolved]
